FAERS Safety Report 7744756-9 (Version None)
Quarter: 2011Q3

REPORT INFORMATION
  Report Type: 
  Country: None (occurrence: None)
  Receive Date: 20110912
  Receipt Date: 20110912
  Transmission Date: 20111222
  Serious: Yes (Other)
  Sender: FDA-Public Use
  Company Number: None

PATIENT
  Sex: Male

DRUGS (2)
  1. SPRIX [Suspect]
     Indication: PAIN
     Dosage: ONE IN EACH NOSTRIL VERY
     Dates: start: 20110906, end: 20110906
  2. PERCOCET [Concomitant]

REACTIONS (3)
  - NASAL DISCOMFORT [None]
  - LACRIMATION INCREASED [None]
  - PAIN [None]
